FAERS Safety Report 18600311 (Version 1)
Quarter: 2020Q4

REPORT INFORMATION
  Report Type: Spontaneous
  Country: FI (occurrence: FI)
  Receive Date: 20201210
  Receipt Date: 20201210
  Transmission Date: 20210114
  Serious: Yes (Death)
  Sender: FDA-Public Use
  Company Number: FI-ACCORD-210778

PATIENT
  Sex: Male

DRUGS (1)
  1. SERTRALINE [Suspect]
     Active Substance: SERTRALINE HYDROCHLORIDE
     Indication: PRODUCT USED FOR UNKNOWN INDICATION
     Dates: start: 202004

REACTIONS (4)
  - Condition aggravated [Fatal]
  - Feeling abnormal [Fatal]
  - Intentional self-injury [Fatal]
  - Self-injurious ideation [Fatal]

NARRATIVE: CASE EVENT DATE: 202004
